FAERS Safety Report 6322358-9 (Version None)
Quarter: 2009Q3

REPORT INFORMATION
  Report Type: 
  Country: None (occurrence: None)
  Receive Date: 20090824
  Receipt Date: 20090204
  Transmission Date: 20100115
  Serious: No
  Sender: FDA-Public Use
  Company Number: US-ABBOTT-09P-163-0501860-00

PATIENT
  Sex: Female
  Weight: 54.934 kg

DRUGS (10)
  1. NIASPAN [Suspect]
     Indication: BLOOD CHOLESTEROL INCREASED
     Route: 048
     Dates: start: 20081001, end: 20090101
  2. NIASPAN [Suspect]
     Indication: BLOOD TRIGLYCERIDES INCREASED
  3. METFORMIN HCL [Concomitant]
     Indication: BLOOD GLUCOSE INCREASED
  4. NEXIUM [Concomitant]
     Indication: GASTROOESOPHAGEAL REFLUX DISEASE
  5. ESTROTEST [Concomitant]
     Indication: HOT FLUSH
  6. SYNTHROID [Concomitant]
     Indication: HYPOTHYROIDISM
  7. VITAMIN D [Concomitant]
     Indication: VITAMIN SUPPLEMENTATION
  8. FOLIC ACID [Concomitant]
     Indication: HOMOCYSTINAEMIA
  9. SOMA [Concomitant]
     Indication: FIBROMYALGIA
  10. VICODIN [Concomitant]
     Indication: FIBROMYALGIA

REACTIONS (3)
  - FLUSHING [None]
  - FUNGAL INFECTION [None]
  - PSORIASIS [None]
